FAERS Safety Report 15571317 (Version 1)
Quarter: 2018Q4

REPORT INFORMATION
  Report Type: Spontaneous
  Country: FR (occurrence: FR)
  Receive Date: 20181031
  Receipt Date: 20181031
  Transmission Date: 20190205
  Serious: Yes (Other)
  Sender: FDA-Public Use
  Company Number: FR-ALLERGAN-1850989US

PATIENT
  Age: 73 Year
  Sex: Male
  Weight: 98 kg

DRUGS (11)
  1. LOSARTAN POTASSIUM. [Concomitant]
     Active Substance: LOSARTAN POTASSIUM
     Route: 065
  2. OZURDEX [Suspect]
     Active Substance: DEXAMETHASONE
     Indication: DIABETIC RETINAL OEDEMA
     Dosage: 0.7 MG, SINGLE
     Route: 031
  3. EPITOMAX [Concomitant]
     Active Substance: TOPIRAMATE
     Route: 065
  4. MAXALT [Concomitant]
     Active Substance: RIZATRIPTAN BENZOATE
     Route: 065
  5. AMLODIPINE [Concomitant]
     Active Substance: AMLODIPINE BESYLATE
     Route: 065
  6. METFORMINE [Concomitant]
     Active Substance: METFORMIN HYDROCHLORIDE
     Route: 065
  7. ZOLOFT [Concomitant]
     Active Substance: SERTRALINE HYDROCHLORIDE
     Route: 065
  8. TOBREX [Concomitant]
     Active Substance: TOBRAMYCIN
     Route: 065
  9. VITAMINE B12 [Concomitant]
     Active Substance: CYANOCOBALAMIN
     Route: 065
  10. VISMED [Concomitant]
     Active Substance: HYALURONATE SODIUM
     Route: 065
  11. VITAMINE A [Concomitant]
     Active Substance: RETINOL
     Route: 065

REACTIONS (3)
  - Blepharitis [Recovering/Resolving]
  - Eye pruritus [Recovering/Resolving]
  - Ocular hypertension [Recovering/Resolving]

NARRATIVE: CASE EVENT DATE: 20181003
